FAERS Safety Report 9384819 (Version 1)
Quarter: 2013Q3

REPORT INFORMATION
  Report Type: Spontaneous
  Country: US (occurrence: US)
  Receive Date: 20130705
  Receipt Date: 20130705
  Transmission Date: 20140515
  Serious: No
  Sender: FDA-Public Use
  Company Number: US-PFIZER INC-2013197209

PATIENT
  Age: 63 Year
  Sex: Female
  Weight: 63.04 kg

DRUGS (7)
  1. TIKOSYN [Suspect]
     Indication: ATRIAL FIBRILLATION
     Dosage: 125 UG, 2X/DAY
     Dates: start: 200607
  2. TIKOSYN [Suspect]
     Indication: SICK SINUS SYNDROME
  3. TIKOSYN [Suspect]
     Indication: VENTRICULAR TACHYCARDIA
  4. DIGOXIN [Suspect]
     Indication: ATRIAL FIBRILLATION
     Dosage: 125 MG, 1X/DAY
     Dates: start: 2006
  5. DIGOXIN [Suspect]
     Indication: SICK SINUS SYNDROME
  6. DIGOXIN [Suspect]
     Indication: VENTRICULAR TACHYCARDIA
  7. VITAMIN D [Concomitant]
     Indication: VITAMIN D DEFICIENCY
     Dosage: 3000 MG, 1X/DAY

REACTIONS (2)
  - Blood calcium increased [Unknown]
  - Urine calcium decreased [Unknown]
